FAERS Safety Report 9997610 (Version 4)
Quarter: 2014Q3

REPORT INFORMATION
  Report Type: Spontaneous
  Country: US (occurrence: US)
  Receive Date: 20140311
  Receipt Date: 20140730
  Transmission Date: 20150326
  Serious: Yes (Hospitalization, Other)
  Sender: FDA-Public Use
  Company Number: US-B.I. PHARMACEUTICALS,INC./RIDGEFIELD-2014-BI-09880BP

PATIENT
  Age: 70 Year
  Sex: Female
  Weight: 63.5 kg

DRUGS (31)
  1. ADVAIR DISKUS [Suspect]
     Active Substance: FLUTICASONE PROPIONATE\SALMETEROL XINAFOATE
     Indication: PNEUMONIA
     Dosage: FORMULATION: MULTI DOSE POWDER INHALER; STRENGTH: 250/50 MCG
     Route: 055
     Dates: start: 20020123
  2. ALBUTEROL INHALER [Concomitant]
     Active Substance: ALBUTEROL
     Indication: CHRONIC OBSTRUCTIVE PULMONARY DISEASE
     Route: 055
  3. LORTAB [Concomitant]
     Active Substance: ACETAMINOPHEN\HYDROCODONE BITARTRATE
     Route: 065
  4. CARVEDILOL. [Concomitant]
     Active Substance: CARVEDILOL
     Dosage: 6.25 MG
     Route: 048
  5. DOCUSATE SODIUM. [Concomitant]
     Active Substance: DOCUSATE SODIUM
     Indication: FAECES HARD
     Dosage: 100 MG
     Route: 048
  6. THEOPHYLLINE [Concomitant]
     Active Substance: THEOPHYLLINE
     Dosage: 400 MG
     Route: 048
  7. IPRATROP. BR+SALBUTAM.SO4 [Concomitant]
  8. FRUSEMIDE [Concomitant]
     Active Substance: FUROSEMIDE
     Route: 065
  9. FLUTICASONE [Concomitant]
     Active Substance: FLUTICASONE\FLUTICASONE PROPIONATE
     Dosage: FORMULATION:NASAL SPRAY,DOSE PER APPLICATION:1 SPRAY; DAILY DOSE 1 SPRAY
     Route: 045
  10. FUROSEMIDE. [Concomitant]
     Active Substance: FUROSEMIDE
     Indication: FLUID RETENTION
     Dosage: 40 MG
     Route: 048
  11. FIBER [Concomitant]
     Active Substance: PSYLLIUM HUSK
     Route: 065
  12. SPIRIVA [Suspect]
     Active Substance: TIOTROPIUM BROMIDE MONOHYDRATE
     Indication: CHRONIC OBSTRUCTIVE PULMONARY DISEASE
     Dosage: 18 MCG
     Route: 055
     Dates: start: 2007
  13. SALBUTAMOL SULPHATE [Concomitant]
     Active Substance: ALBUTEROL SULFATE
     Dosage: FORMULATION: INHALER
     Route: 065
  14. COUMADIN [Concomitant]
     Active Substance: WARFARIN SODIUM
     Indication: CEREBROVASCULAR ACCIDENT
     Route: 048
  15. DIGOXIN. [Concomitant]
     Active Substance: DIGOXIN
     Dosage: 125 MCG
     Route: 048
  16. POTASSIUM KCL [Concomitant]
     Dosage: 20 MEQ
     Route: 048
  17. ROSUVASTATIN [Concomitant]
     Active Substance: ROSUVASTATIN
     Indication: BLOOD CHOLESTEROL INCREASED
     Dosage: 40 MG
     Route: 048
  18. ADVAIR DISKUS [Suspect]
     Active Substance: FLUTICASONE PROPIONATE\SALMETEROL XINAFOATE
     Indication: ASTHMA
  19. MUCINEX [Concomitant]
     Active Substance: GUAIFENESIN
     Dosage: 1200 MG
     Route: 048
  20. POLYCARBOPHIL [Concomitant]
     Active Substance: POLYCARBOPHIL
     Indication: LAXATIVE SUPPORTIVE CARE
     Dosage: 1250 MG
     Route: 048
  21. CALCIUM CARBONATE + VITAM. D [Concomitant]
     Route: 065
  22. SALMETEROL XINAFOATE [Concomitant]
     Active Substance: SALMETEROL XINAFOATE
     Route: 065
  23. ALBUTEROL. [Concomitant]
     Active Substance: ALBUTEROL
     Indication: CHRONIC OBSTRUCTIVE PULMONARY DISEASE
     Dosage: 10 ML
     Route: 055
  24. CALCIUM OYSTER SHELL [Concomitant]
     Dosage: DOSE PER APPLICATION:1250 MG/200 MG; DAILY DOSE: 2500MG/400MG
     Route: 048
  25. HYDROCODONE [Concomitant]
     Active Substance: HYDROCODONE
     Indication: PAIN
     Dosage: DOSE PER APPLICATION : 7.5-500 MG
     Route: 048
  26. SALBUTAMOL SULPHATE [Concomitant]
     Active Substance: ALBUTEROL SULFATE
     Dosage: FORMULATION: NEBULIZER
     Route: 065
  27. BENZONATATE TESSALON [Concomitant]
     Indication: COUGH
     Dosage: 300 MG
     Route: 048
  28. ADVAIR DISKUS [Concomitant]
     Active Substance: FLUTICASONE PROPIONATE\SALMETEROL XINAFOATE
     Indication: CHRONIC OBSTRUCTIVE PULMONARY DISEASE
     Dosage: DOSE PER APPLICATION:250/50 MCG; DAILY DOSE250/50
     Route: 055
  29. ISOSORBIDE [Concomitant]
     Active Substance: ISOSORBIDE
     Dosage: 30 MG
     Route: 048
  30. LACTULOSE. [Concomitant]
     Active Substance: LACTULOSE
     Indication: CONSTIPATION
     Dosage: DOSE PER APPLICATION:30 CC, DAILY DOSE: 30 CC
     Route: 048
  31. OMEPRAZOLE. [Concomitant]
     Active Substance: OMEPRAZOLE
     Indication: GASTROOESOPHAGEAL REFLUX DISEASE
     Dosage: 20 MG
     Route: 048

REACTIONS (10)
  - Transient ischaemic attack [Recovered/Resolved with Sequelae]
  - Pneumonectomy [Recovered/Resolved]
  - Myocardial infarction [Recovered/Resolved]
  - Cardiac arrest [Recovered/Resolved]
  - Apparent death [Recovered/Resolved]
  - Lung neoplasm malignant [Recovered/Resolved]
  - Myocardial infarction [Recovered/Resolved]
  - Muscular weakness [Unknown]
  - Pneumonia [Recovered/Resolved]
  - Transient ischaemic attack [Unknown]

NARRATIVE: CASE EVENT DATE: 200810
